FAERS Safety Report 9286549 (Version 2)
Quarter: 2013Q2

REPORT INFORMATION
  Report Type: Spontaneous
  Country: US (occurrence: US)
  Receive Date: 20130513
  Receipt Date: 20130528
  Transmission Date: 20140414
  Serious: Yes (Death)
  Sender: FDA-Public Use
  Company Number: US-B.I. PHARMACEUTICALS,INC./RIDGEFIELD-2013-BI-12938BP

PATIENT
  Age: 77 Year
  Sex: Male

DRUGS (5)
  1. PRADAXA [Suspect]
     Indication: CEREBROVASCULAR ACCIDENT PROPHYLAXIS
     Dosage: 300 MG
     Dates: start: 2013
  2. PRADAXA [Suspect]
     Indication: ATRIAL FIBRILLATION
  3. SOTALOL [Concomitant]
  4. CARDIZEM [Concomitant]
  5. LANTUS [Concomitant]
     Dosage: 240 MG

REACTIONS (1)
  - Gastrointestinal haemorrhage [Fatal]
